FAERS Safety Report 15325524 (Version 1)
Quarter: 2018Q3

REPORT INFORMATION
  Report Type: Spontaneous
  Country: GB (occurrence: GB)
  Receive Date: 20180828
  Receipt Date: 20180828
  Transmission Date: 20181010
  Serious: Yes (Other)
  Sender: FDA-Public Use
  Company Number: GB-PFIZER INC-2018337682

PATIENT
  Age: 39 Year
  Sex: Female
  Weight: 85.72 kg

DRUGS (2)
  1. SERTRALINE HCL [Suspect]
     Active Substance: SERTRALINE HYDROCHLORIDE
     Indication: DEPRESSED MOOD
     Dosage: 50 MG, 1X/DAY
     Route: 048
     Dates: start: 20180720, end: 20180721
  2. PARACETAMOL [Concomitant]
     Active Substance: ACETAMINOPHEN
     Dosage: UNK

REACTIONS (23)
  - Decreased appetite [Unknown]
  - Hyperhidrosis [Unknown]
  - Anxiety [Unknown]
  - Dry eye [Unknown]
  - Dysphoria [Unknown]
  - Dry mouth [Unknown]
  - Visual impairment [Recovered/Resolved]
  - Dizziness [Unknown]
  - Feeling jittery [Unknown]
  - Intrusive thoughts [Unknown]
  - Dry throat [Unknown]
  - Cognitive disorder [Unknown]
  - Feeling abnormal [Recovered/Resolved]
  - Tension [Recovered/Resolved]
  - Dehydration [Unknown]
  - Body temperature increased [Unknown]
  - Palpitations [Unknown]
  - Impaired work ability [Unknown]
  - Dysphagia [Unknown]
  - Eye movement disorder [Unknown]
  - Chromaturia [Unknown]
  - Tachyphrenia [Unknown]
  - Inadequate analgesia [Unknown]

NARRATIVE: CASE EVENT DATE: 20180720
